FAERS Safety Report 26006611 (Version 2)
Quarter: 2025Q4

REPORT INFORMATION
  Report Type: Spontaneous
  Country: CO (occurrence: CO)
  Receive Date: 20251106
  Receipt Date: 20251126
  Transmission Date: 20260117
  Serious: No
  Sender: PFIZER
  Company Number: CO-PFIZER INC-202500214293

PATIENT
  Sex: Female

DRUGS (1)
  1. GENOTROPIN [Suspect]
     Active Substance: SOMATROPIN
     Dosage: UNK

REACTIONS (1)
  - Product deposit [Unknown]
